FAERS Safety Report 8671619 (Version 6)
Quarter: 2016Q3

REPORT INFORMATION
  Report Type: Report from Study
  Country: IT (occurrence: IT)
  Receive Date: 20120718
  Receipt Date: 20160824
  Transmission Date: 20161109
  Serious: Yes (Hospitalization)
  Sender: FDA-Public Use
  Company Number: IT-JNJFOC-20120707035

PATIENT
  Sex: Female
  Weight: 51 kg

DRUGS (2)
  1. REMICADE [Suspect]
     Active Substance: INFLIXIMAB
     Indication: COLITIS ULCERATIVE
     Dosage: DOSE: 255 MG
     Route: 042
     Dates: start: 200807
  2. REMICADE [Suspect]
     Active Substance: INFLIXIMAB
     Indication: COLITIS ULCERATIVE
     Dosage: STOPPED AFTER SECOND INFUSION DUE TO AN INFUSION RELATED REACTION
     Route: 042
     Dates: end: 200807

REACTIONS (5)
  - Pyrexia [Recovered/Resolved]
  - Abdominal pain [Recovered/Resolved]
  - Vomiting [Recovered/Resolved]
  - Diarrhoea [Recovered/Resolved]
  - Ileostomy closure [Recovered/Resolved]

NARRATIVE: CASE EVENT DATE: 20110614
